FAERS Safety Report 22091654 (Version 1)
Quarter: 2023Q1

REPORT INFORMATION
  Report Type: Report from Study
  Country: CO (occurrence: CO)
  Receive Date: 20230314
  Receipt Date: 20230314
  Transmission Date: 20230417
  Serious: Yes (Hospitalization, Other)
  Sender: FDA-Public Use
  Company Number: CO-ABBVIE-4339294

PATIENT
  Age: 37 Year
  Sex: Female

DRUGS (1)
  1. ZEMPLAR [Suspect]
     Active Substance: PARICALCITOL
     Indication: Hyperparathyroidism secondary
     Dosage: 2 MICROGRAM
     Route: 048
     Dates: start: 20220818, end: 20221111

REACTIONS (4)
  - Cerebrovascular accident [Not Recovered/Not Resolved]
  - Speech disorder [Not Recovered/Not Resolved]
  - Immobile [Not Recovered/Not Resolved]
  - Gait disturbance [Not Recovered/Not Resolved]

NARRATIVE: CASE EVENT DATE: 20230201
